FAERS Safety Report 14946204 (Version 1)
Quarter: 2018Q2

REPORT INFORMATION
  Report Type: Spontaneous
  Country: FR (occurrence: FR)
  Receive Date: 20180529
  Receipt Date: 20180529
  Transmission Date: 20180711
  Serious: Yes (Disabling)
  Sender: FDA-Public Use
  Company Number: FR-TEVA-2018-FR-898759

PATIENT
  Age: 50 Year
  Sex: Female
  Weight: 75 kg

DRUGS (2)
  1. PACLITAXEL. [Suspect]
     Active Substance: PACLITAXEL
     Indication: HER-2 POSITIVE BREAST CANCER
     Dates: start: 20160201, end: 20160421
  2. HERCEPTIN [Suspect]
     Active Substance: TRASTUZUMAB
     Indication: HER-2 POSITIVE BREAST CANCER
     Dosage: 8 AND THEN 6 MG / KG
     Route: 065
     Dates: start: 20160201

REACTIONS (7)
  - Paraesthesia [Unknown]
  - Musculoskeletal pain [Recovering/Resolving]
  - Foreign body sensation in eyes [Unknown]
  - Dysgeusia [Unknown]
  - Neuropathy peripheral [Recovering/Resolving]
  - Allodynia [Unknown]
  - Walking disability [Recovering/Resolving]

NARRATIVE: CASE EVENT DATE: 201602
